FAERS Safety Report 6682309-4 (Version None)
Quarter: 2010Q2

REPORT INFORMATION
  Report Type: 
  Country: None (occurrence: None)
  Receive Date: 20100414
  Receipt Date: 20100414
  Transmission Date: 20101027
  Serious: Yes (Life-Threatening, Hospitalization)
  Sender: FDA-Public Use
  Company Number: None

PATIENT
  Sex: Female
  Weight: 80 kg

DRUGS (1)
  1. PRISTIQ [Suspect]
     Indication: DEPRESSION
     Dosage: 50 MG 1 TABLET PER DAY ORAL 047
     Route: 048
     Dates: start: 20090122, end: 20090324

REACTIONS (4)
  - BLOOD CHOLESTEROL INCREASED [None]
  - DISSECTING CORONARY ARTERY ANEURYSM [None]
  - HYPERTENSION [None]
  - MYOCARDIAL INFARCTION [None]
